FAERS Safety Report 9949448 (Version 1)
Quarter: 2014Q1

REPORT INFORMATION
  Report Type: Report from Study
  Country: US (occurrence: US)
  Receive Date: 20140304
  Receipt Date: 20140304
  Transmission Date: 20141002
  Serious: Yes (Hospitalization, Other)
  Sender: FDA-Public Use
  Company Number: US-ASTELLAS-2014US002179

PATIENT
  Sex: Female

DRUGS (2)
  1. ERLOTINIB TABLET [Suspect]
     Indication: PANCREATIC CARCINOMA
     Dosage: 100 MG, UID/QD
     Route: 048
     Dates: start: 201401, end: 20140211
  2. GEMCITABINE HCL [Concomitant]
     Indication: PANCREATIC CARCINOMA
     Dosage: UNK
     Route: 065

REACTIONS (7)
  - Drug ineffective [Unknown]
  - White blood cell count decreased [Unknown]
  - Cerebrovascular accident [Unknown]
  - Weight fluctuation [Unknown]
  - Tumour marker increased [Unknown]
  - Rash [Recovered/Resolved]
  - Malaise [Not Recovered/Not Resolved]
